FAERS Safety Report 8601545-0 (Version None)
Quarter: 2012Q3

REPORT INFORMATION
  Report Type: 
  Country: None (occurrence: None)
  Receive Date: 20120817
  Receipt Date: 20111108
  Transmission Date: 20120928
  Serious: No
  Sender: FDA-Public Use
  Company Number: US-BRISTOL-MYERS SQUIBB COMPANY-16213720

PATIENT
  Age: 69 Year
  Sex: Female
  Weight: 81 kg

DRUGS (1)
  1. SPRYCEL [Suspect]
     Indication: LEUKAEMIA
     Route: 048
     Dates: start: 20110101

REACTIONS (2)
  - HEADACHE [None]
  - RHINORRHOEA [None]
